FAERS Safety Report 12089523 (Version 1)
Quarter: 2016Q1

REPORT INFORMATION
  Report Type: Spontaneous
  Country: US (occurrence: US)
  Receive Date: 20160218
  Receipt Date: 20160218
  Transmission Date: 20160526
  Serious: Yes (Hospitalization)
  Sender: FDA-Public Use
  Company Number: US-ENDO PHARMACEUTICALS INC.-2016-001162

PATIENT
  Age: 56 Year
  Sex: Male
  Weight: 106.69 kg

DRUGS (3)
  1. VANTAS [Suspect]
     Active Substance: HISTRELIN ACETATE
     Indication: PROSTATE CANCER
     Route: 065
     Dates: start: 20160127
  2. VANTAS [Suspect]
     Active Substance: HISTRELIN ACETATE
     Route: 065
     Dates: start: 20150113, end: 20160127
  3. VANTAS [Suspect]
     Active Substance: HISTRELIN ACETATE
     Route: 065
     Dates: start: 20131231, end: 20150113

REACTIONS (1)
  - Cellulitis [Recovering/Resolving]

NARRATIVE: CASE EVENT DATE: 20160129
